FAERS Safety Report 14862083 (Version 1)
Quarter: 2018Q2

REPORT INFORMATION
  Report Type: Spontaneous
  Country: US (occurrence: US)
  Receive Date: 20180508
  Receipt Date: 20180508
  Transmission Date: 20180711
  Serious: No
  Sender: FDA-Public Use
  Company Number: US-CELLTRION INC.-2018US017590

PATIENT

DRUGS (3)
  1. INFLECTRA [Suspect]
     Active Substance: INFLIXIMAB-DYYB
     Dosage: 5 VIAL,Q 4 WEEKS
     Route: 065
     Dates: start: 20180208, end: 20180208
  2. INFLECTRA [Suspect]
     Active Substance: INFLIXIMAB-DYYB
     Dosage: 5 VIAL,Q 4 WEEKS
     Route: 065
     Dates: start: 20180308, end: 20180308
  3. INFLECTRA [Suspect]
     Active Substance: INFLIXIMAB-DYYB
     Indication: COLITIS ULCERATIVE
     Dosage: 5 VIAL,Q 4 WEEKS
     Route: 065
     Dates: start: 20180111, end: 20180111

REACTIONS (1)
  - Inappropriate schedule of drug administration [Unknown]
